FAERS Safety Report 17070323 (Version 1)
Quarter: 2019Q4

REPORT INFORMATION
  Report Type: Spontaneous
  Country: US (occurrence: US)
  Receive Date: 20191125
  Receipt Date: 20191125
  Transmission Date: 20200122
  Serious: Yes (Other)
  Sender: FDA-Public Use
  Company Number: US-STRIDES ARCOLAB LIMITED-2019SP011574

PATIENT
  Age: 50 Year
  Sex: Male

DRUGS (1)
  1. HYDRALAZINE HCL [Suspect]
     Active Substance: HYDRALAZINE HYDROCHLORIDE
     Indication: PRODUCT USED FOR UNKNOWN INDICATION
     Dosage: 50 MILLIGRAM, BID
     Route: 065

REACTIONS (6)
  - Skin necrosis [Recovered/Resolved]
  - Hypersensitivity vasculitis [Recovered/Resolved]
  - Anti-neutrophil cytoplasmic antibody positive vasculitis [Recovered/Resolved]
  - Mouth ulceration [Recovered/Resolved]
  - Lupus-like syndrome [Recovered/Resolved]
  - Dermatitis bullous [Recovered/Resolved]
